FAERS Safety Report 7485852-3 (Version None)
Quarter: 2011Q2

REPORT INFORMATION
  Report Type: 
  Country: None (occurrence: None)
  Receive Date: 20110509
  Receipt Date: 20110429
  Transmission Date: 20111010
  Serious: Yes (Hospitalization, Other)
  Sender: FDA-Public Use
  Company Number: WAES 1007USA03742

PATIENT
  Age: 56 Year
  Sex: Female

DRUGS (10)
  1. LANTUS [Concomitant]
  2. PLACEBO [Suspect]
     Indication: ACUTE CORONARY SYNDROME
     Dosage: PO
     Route: 048
     Dates: start: 20091206
  3. VASODIP [Concomitant]
  4. LOSARTAN POTASSIUM [Concomitant]
  5. ZOCOR [Suspect]
     Indication: ACUTE CORONARY SYNDROME
     Dosage: PO
     Route: 048
     Dates: start: 20091206
  6. APIDRA [Concomitant]
  7. CLOPIDOGREL BISULFATE [Concomitant]
  8. CADEX [Concomitant]
  9. PLACEBO [Suspect]
     Indication: ACUTE CORONARY SYNDROME
     Dosage: PO
     Route: 048
     Dates: start: 20091206
  10. ASPIRIN [Concomitant]

REACTIONS (1)
  - ENDOMETRIAL CANCER [None]
